FAERS Safety Report 22337492 (Version 1)
Quarter: 2023Q2

REPORT INFORMATION
  Report Type: Spontaneous
  Country: US (occurrence: US)
  Receive Date: 20230518
  Receipt Date: 20230518
  Transmission Date: 20230721
  Serious: Yes (Hospitalization)
  Sender: FDA-Public Use
  Company Number: None

PATIENT
  Age: 80 Year
  Sex: Male
  Weight: 58.4 kg

DRUGS (5)
  1. YERVOY [Suspect]
     Active Substance: IPILIMUMAB
     Indication: Metastatic malignant melanoma
     Dosage: PER DOSIS
     Route: 041
     Dates: start: 20220106, end: 20220106
  2. YERVOY [Suspect]
     Active Substance: IPILIMUMAB
     Dosage: PER DOSIS
     Route: 041
     Dates: start: 20220127, end: 20220127
  3. OPDIVO [Suspect]
     Active Substance: NIVOLUMAB
     Indication: Metastatic malignant melanoma
     Dosage: PER DOSIS
     Route: 041
     Dates: start: 20220106, end: 20220106
  4. OPDIVO [Suspect]
     Active Substance: NIVOLUMAB
     Dosage: PER DOSIS
     Route: 041
     Dates: start: 20220127, end: 20220127
  5. ISONIAZID [Suspect]
     Active Substance: ISONIAZID
     Indication: Latent tuberculosis
     Route: 048
     Dates: start: 20220211, end: 20220407

REACTIONS (3)
  - Immune-mediated adverse reaction [Recovering/Resolving]
  - Immune-mediated enterocolitis [Recovering/Resolving]
  - Liver function test abnormal [Recovering/Resolving]

NARRATIVE: CASE EVENT DATE: 20220208
